FAERS Safety Report 25191089 (Version 3)
Quarter: 2025Q3

REPORT INFORMATION
  Report Type: Spontaneous
  Country: US (occurrence: US)
  Receive Date: 20250411
  Receipt Date: 20250707
  Transmission Date: 20251020
  Serious: No
  Sender: PFIZER
  Company Number: US-PFIZER INC-PV202500043133

PATIENT
  Age: 73 Year
  Sex: Male

DRUGS (3)
  1. BRAFTOVI [Suspect]
     Active Substance: ENCORAFENIB
     Indication: Colon cancer
     Dosage: 300 MG, DAILY (TAKE 4 CAPSULE(S) BY MOUTH EVERY DAY)
     Route: 048
  2. BRAFTOVI [Suspect]
     Active Substance: ENCORAFENIB
     Dosage: 225 MG, DAILY (TAKE 3 CAPSULE(S))
     Route: 048
  3. BRAFTOVI [Suspect]
     Active Substance: ENCORAFENIB
     Dosage: TAKE 4 CAPSULES (300 MG) BY MOUTH DAILY. WITH OR WITHOUT FOOD.
     Route: 048

REACTIONS (1)
  - Fatigue [Unknown]
